FAERS Safety Report 7369573-3 (Version None)
Quarter: 2011Q1

REPORT INFORMATION
  Report Type: 
  Country: None (occurrence: None)
  Receive Date: 20110314
  Receipt Date: 20110303
  Transmission Date: 20110831
  Serious: Yes (Hospitalization)
  Sender: FDA-Public Use
  Company Number: UTC-005537

PATIENT
  Age: 49 Year
  Sex: Female
  Weight: 65.9 kg

DRUGS (1)
  1. REMODULIN [Suspect]
     Indication: PULMONARY ARTERIAL HYPERTENSION
     Dosage: 37.44 UQ/KG (0.026 UG/KQ, 1 IN 1 MIN),INTRAVENOUS
     Route: 042

REACTIONS (2)
  - PAIN IN EXTREMITY [None]
  - INJECTION SITE INFECTION [None]
